FAERS Safety Report 13535950 (Version 1)
Quarter: 2017Q2

REPORT INFORMATION
  Report Type: Spontaneous
  Country: US (occurrence: US)
  Receive Date: 20170511
  Receipt Date: 20170511
  Transmission Date: 20170830
  Serious: No
  Sender: FDA-Public Use
  Company Number: US-PFIZER INC-2016387761

PATIENT
  Age: 60 Year
  Sex: Male
  Weight: 100.7 kg

DRUGS (2)
  1. VIAGRA [Suspect]
     Active Substance: SILDENAFIL CITRATE
     Indication: ERECTILE DYSFUNCTION
     Dosage: 100 MG, 2X/DAY
  2. VIAGRA [Suspect]
     Active Substance: SILDENAFIL CITRATE
     Dosage: 100 MG, 1X/DAY

REACTIONS (1)
  - Drug ineffective [Not Recovered/Not Resolved]

NARRATIVE: CASE EVENT DATE: 201704
